FAERS Safety Report 18451946 (Version 2)
Quarter: 2020Q4

REPORT INFORMATION
  Report Type: Report from Study
  Country: US (occurrence: US)
  Receive Date: 20201102
  Receipt Date: 20201203
  Transmission Date: 20210114
  Serious: Yes (Hospitalization, Other)
  Sender: FDA-Public Use
  Company Number: US-IPSEN BIOPHARMACEUTICALS, INC.-2019-03017

PATIENT
  Age: 5 Year
  Sex: Male
  Weight: 33.1 kg

DRUGS (36)
  1. VERSED [Concomitant]
     Active Substance: MIDAZOLAM HYDROCHLORIDE
     Dosage: PRN - AS NEEDED
     Route: 045
     Dates: start: 20200220
  2. AMOXICILLIN. [Concomitant]
     Active Substance: AMOXICILLIN
     Indication: SINUSITIS BACTERIAL
  3. SALINE [Concomitant]
     Active Substance: SODIUM CHLORIDE
     Indication: UPPER RESPIRATORY TRACT INFECTION
     Dosage: 2 SPRAY AS NEEDED OF SALINE 0.65 PERCENT SPRAY;PRN - AS NEEDED
     Route: 045
     Dates: start: 20190313, end: 20200221
  4. VERSED [Concomitant]
     Active Substance: MIDAZOLAM HYDROCHLORIDE
     Indication: SEIZURE
     Dosage: PRN - AS NEEDED
     Route: 045
     Dates: start: 20161011, end: 20200220
  5. LAMICTAL [Concomitant]
     Active Substance: LAMOTRIGINE
     Indication: SEIZURE
     Route: 048
     Dates: start: 20150925, end: 20200122
  6. LAMICTAL [Concomitant]
     Active Substance: LAMOTRIGINE
     Dosage: DAILY PM
     Route: 048
     Dates: start: 20200122, end: 20200218
  7. TYLENOL [Concomitant]
     Active Substance: ACETAMINOPHEN
     Indication: PAIN
     Route: 048
     Dates: start: 20191205
  8. TYLENOL [Concomitant]
     Active Substance: ACETAMINOPHEN
     Indication: PYREXIA
  9. DYSPORT [Suspect]
     Active Substance: ABOBOTULINUMTOXINA
     Indication: MUSCLE SPASTICITY
  10. DECADRON [Concomitant]
     Active Substance: DEXAMETHASONE
     Indication: PHARYNGITIS
  11. ONFI [Concomitant]
     Active Substance: CLOBAZAM
     Route: 048
     Dates: start: 20200225, end: 20200302
  12. DYSPORT [Suspect]
     Active Substance: ABOBOTULINUMTOXINA
     Indication: MUSCLE SPASTICITY
     Dosage: 640 INTERNATIONAL UNITS
     Route: 030
     Dates: start: 20180417, end: 20180417
  13. AUGMENTIN [Concomitant]
     Active Substance: AMOXICILLIN\CLAVULANATE POTASSIUM
     Route: 048
     Dates: start: 20190904
  14. MOTRIN [Concomitant]
     Active Substance: IBUPROFEN
     Indication: PAIN
     Route: 048
     Dates: start: 20191205
  15. AMOXICILLIN. [Concomitant]
     Active Substance: AMOXICILLIN
     Indication: OTITIS MEDIA
     Route: 048
     Dates: start: 20180803, end: 20180813
  16. DECADRON [Concomitant]
     Active Substance: DEXAMETHASONE
     Indication: CROUP INFECTIOUS
     Route: 048
     Dates: start: 20181128, end: 20181128
  17. ONFI [Concomitant]
     Active Substance: CLOBAZAM
     Dosage: AT NIGHT
     Route: 048
     Dates: start: 20200401, end: 20200407
  18. DYSPORT [Suspect]
     Active Substance: ABOBOTULINUMTOXINA
     Indication: OFF LABEL USE
  19. DIASTAT [Concomitant]
     Active Substance: DIAZEPAM
     Indication: SEIZURE
     Dosage: PRN - AS NEEDED
     Route: 054
     Dates: start: 20130826
  20. LAMICTAL [Concomitant]
     Active Substance: LAMOTRIGINE
     Dosage: DAILY AM
     Route: 048
     Dates: start: 20200122, end: 20200218
  21. LAMICTAL [Concomitant]
     Active Substance: LAMOTRIGINE
     Route: 048
     Dates: start: 20200218
  22. ONFI [Concomitant]
     Active Substance: CLOBAZAM
     Indication: SEIZURE
     Route: 048
     Dates: start: 20200224, end: 20200225
  23. MULTIVITAMIN [Concomitant]
     Active Substance: VITAMINS
     Dosage: 1 ML
     Route: 048
     Dates: start: 20160915, end: 20200224
  24. AUGMENTIN [Concomitant]
     Active Substance: AMOXICILLIN\CLAVULANATE POTASSIUM
     Route: 048
     Dates: start: 20190501, end: 20190511
  25. AMOXICILLIN. [Concomitant]
     Active Substance: AMOXICILLIN
     Indication: UPPER RESPIRATORY TRACT INFECTION
     Route: 048
     Dates: start: 20191205, end: 20191215
  26. ONFI [Concomitant]
     Active Substance: CLOBAZAM
     Dosage: EVERY MORNING
     Route: 048
     Dates: start: 20200407, end: 20200514
  27. TRILEPTAL [Concomitant]
     Active Substance: OXCARBAZEPINE
     Indication: SEIZURE
     Route: 048
     Dates: start: 20130904, end: 20190930
  28. MOTRIN [Concomitant]
     Active Substance: IBUPROFEN
     Indication: PYREXIA
  29. ZYRTEC [Concomitant]
     Active Substance: CETIRIZINE HYDROCHLORIDE
     Indication: HYPERSENSITIVITY
     Dosage: PRN - AS NEEDED
     Route: 048
     Dates: start: 20191002
  30. ONFI [Concomitant]
     Active Substance: CLOBAZAM
     Dosage: 1 PER DAY
     Route: 048
     Dates: start: 20200302, end: 20200306
  31. ONFI [Concomitant]
     Active Substance: CLOBAZAM
     Dosage: I PER DAY
     Route: 048
     Dates: start: 20200307, end: 20200401
  32. ONFI [Concomitant]
     Active Substance: CLOBAZAM
     Dosage: EVERY PM
     Route: 048
     Dates: start: 20200407, end: 20200514
  33. LAMICTAL [Concomitant]
     Active Substance: LAMOTRIGINE
     Route: 048
     Dates: start: 20200306, end: 20200306
  34. VITAMIN D [Concomitant]
     Active Substance: VITAMIN D NOS
     Route: 048
     Dates: start: 20130312
  35. ONFI [Concomitant]
     Active Substance: CLOBAZAM
     Indication: SEIZURE
     Route: 048
     Dates: start: 20200221, end: 20200224
  36. ONFI [Concomitant]
     Active Substance: CLOBAZAM
     Route: 048
     Dates: start: 20200514, end: 20200921

REACTIONS (26)
  - Croup infectious [Recovered/Resolved]
  - Fall [Recovered/Resolved]
  - Pharyngitis [Recovered/Resolved]
  - Headache [Recovered/Resolved]
  - Foreign body [Recovered/Resolved]
  - Ear pain [Recovered/Resolved]
  - Sinusitis bacterial [Recovered/Resolved]
  - Pharyngitis [Recovered/Resolved]
  - Dehydration [Recovered/Resolved]
  - Off label use [Unknown]
  - Confusional state [Recovered/Resolved]
  - Upper respiratory tract infection [Recovered/Resolved]
  - Upper respiratory tract infection [Recovered/Resolved]
  - Dental caries [Recovered/Resolved]
  - Hypersensitivity [Recovered/Resolved]
  - Headache [Recovered/Resolved]
  - Seizure [Recovered/Resolved]
  - Seizure [Recovered/Resolved]
  - Sinusitis bacterial [Recovered/Resolved]
  - Sinusitis bacterial [Recovered/Resolved]
  - Upper respiratory tract infection [Recovered/Resolved]
  - Concussion [Recovered/Resolved]
  - Otitis media [Recovered/Resolved]
  - Joint dislocation [Recovered/Resolved]
  - Seizure [Recovered/Resolved]
  - Eye pain [Recovered/Resolved]

NARRATIVE: CASE EVENT DATE: 20180519
